FAERS Safety Report 4512858-6 (Version None)
Quarter: 2004Q4

REPORT INFORMATION
  Report Type: 
  Country: None (occurrence: None)
  Receive Date: 20041119
  Receipt Date: 20041119
  Transmission Date: 20050328
  Serious: Yes (Other)
  Sender: FDA-Public Use
  Company Number: None

PATIENT
  Age: 37 Year
  Sex: Male

DRUGS (1)
  1. LARIUM 250 MG TABS [Suspect]
     Indication: MALARIA PROPHYLAXIS
     Dosage: 1 Q WEEK

REACTIONS (5)
  - ANXIETY [None]
  - FEELING ABNORMAL [None]
  - FEELING JITTERY [None]
  - PALPITATIONS [None]
  - TREMOR [None]
